FAERS Safety Report 9246736 (Version 1)
Quarter: 2013Q2

REPORT INFORMATION
  Report Type: Spontaneous
  Country: US (occurrence: US)
  Receive Date: 20130422
  Receipt Date: 20130422
  Transmission Date: 20140414
  Serious: Yes (Other)
  Sender: FDA-Public Use
  Company Number: US-PFIZER INC-2013120739

PATIENT
  Sex: Female
  Weight: 2 kg

DRUGS (2)
  1. EPINEPHRINE [Suspect]
     Indication: STRIDOR
     Dosage: 2.25% DILUTED 1:8 IN A SMALL-VOLUME NEBULIZER (FINAL SOLUTION 0.25 %, 1 TO 2 ML)
  2. EPINEPHRINE [Suspect]
     Dosage: UNK

REACTIONS (9)
  - Incorrect route of drug administration [Unknown]
  - Accidental overdose [Unknown]
  - Toxicity to various agents [Unknown]
  - Vasoconstriction [Unknown]
  - Renal failure [Recovered/Resolved]
  - Anuria [Recovered/Resolved]
  - Vasoconstriction [Unknown]
  - Supraventricular tachycardia [Recovered/Resolved]
  - Hypertension [Recovered/Resolved]
